FAERS Safety Report 8289251-6 (Version None)
Quarter: 2012Q2

REPORT INFORMATION
  Report Type: 
  Country: None (occurrence: None)
  Receive Date: 20120412
  Receipt Date: 20120402
  Transmission Date: 20120825
  Serious: Yes (Hospitalization, Other)
  Sender: FDA-Public Use
  Company Number: 2008AL011331

PATIENT
  Age: 62 Year
  Sex: Male

DRUGS (29)
  1. TYLENOL (CAPLET) [Concomitant]
  2. LOVENOX [Concomitant]
  3. CARDIZEM [Concomitant]
  4. ASPIRIN [Concomitant]
  5. LORTAB [Concomitant]
  6. DIGOXIN [Suspect]
     Indication: HEART RATE IRREGULAR
     Dosage: 250 MCG, UNK, PO
     Route: 048
  7. PERCOCET [Concomitant]
  8. LASIX [Concomitant]
  9. KETOPROFEN [Concomitant]
  10. SINGULAIR [Concomitant]
  11. GABAPENTIN [Concomitant]
  12. IBUPROFEN [Concomitant]
  13. ALTACE [Concomitant]
  14. METOPROLOL TARTRATE [Concomitant]
  15. TUSSINAL [Concomitant]
  16. LEVAQUIN [Concomitant]
  17. PLAVIX [Concomitant]
  18. LIPITOR [Concomitant]
  19. HYDROCODONE [Concomitant]
  20. PANTOPRAZOLE [Concomitant]
  21. PROMETHAZINE [Concomitant]
  22. ZOLPIDEM [Concomitant]
  23. NEXIUM [Concomitant]
  24. AMBIEN [Concomitant]
  25. AMIDARONE [Concomitant]
  26. ENOXAPARIN [Concomitant]
  27. DIAZEPAM [Concomitant]
  28. TOPROL-XL [Concomitant]
  29. RAMIPRIL [Concomitant]

REACTIONS (27)
  - VISUAL IMPAIRMENT [None]
  - PAIN [None]
  - MUSCLE STRAIN [None]
  - RADICULOPATHY [None]
  - GASTRITIS [None]
  - BACK PAIN [None]
  - CHEST PAIN [None]
  - CARDIOACTIVE DRUG LEVEL ABOVE THERAPEUTIC [None]
  - TOXICITY TO VARIOUS AGENTS [None]
  - ABASIA [None]
  - ANHEDONIA [None]
  - CARDIAC ENZYMES INCREASED [None]
  - ACCIDENT AT WORK [None]
  - CORONARY ARTERY DISEASE [None]
  - HIATUS HERNIA [None]
  - APHAGIA [None]
  - MULTIPLE INJURIES [None]
  - PALPITATIONS [None]
  - ILL-DEFINED DISORDER [None]
  - ANGINA UNSTABLE [None]
  - HEART RATE IRREGULAR [None]
  - EMOTIONAL DISTRESS [None]
  - IRRITABILITY [None]
  - COLD SWEAT [None]
  - ANXIETY [None]
  - ECONOMIC PROBLEM [None]
  - ATRIAL FIBRILLATION [None]
